FAERS Safety Report 10051820 (Version 1)
Quarter: 2014Q2

REPORT INFORMATION
  Report Type: Spontaneous
  Country: CA (occurrence: CA)
  Receive Date: 20140402
  Receipt Date: 20140402
  Transmission Date: 20141212
  Serious: Yes (Other)
  Sender: FDA-Public Use
  Company Number: CA-ROCHE-1375757

PATIENT
  Age: 66 Year
  Sex: Male

DRUGS (10)
  1. ACTEMRA [Suspect]
     Indication: PRODUCT USED FOR UNKNOWN INDICATION
     Route: 042
  2. MEDROL [Suspect]
     Indication: PRODUCT USED FOR UNKNOWN INDICATION
     Route: 065
  3. MEDROL [Suspect]
     Route: 030
  4. AMLODIPINE [Concomitant]
     Route: 065
  5. CELEBREX [Concomitant]
     Route: 065
  6. FOLIC ACID [Concomitant]
     Route: 065
  7. METHOTREXATE [Concomitant]
     Route: 065
  8. PANTOLOC [Concomitant]
     Route: 065
  9. PRAVASTATIN SODIUM [Concomitant]
     Route: 065
  10. SULFASALAZINE [Concomitant]
     Route: 065

REACTIONS (2)
  - Insomnia [Recovering/Resolving]
  - Rheumatoid arthritis [Recovering/Resolving]
